FAERS Safety Report 4391895-9 (Version None)
Quarter: 2004Q3

REPORT INFORMATION
  Report Type: 
  Country: None (occurrence: None)
  Receive Date: 20040701
  Receipt Date: 20040617
  Transmission Date: 20050211
  Serious: Yes (Hospitalization)
  Sender: FDA-Public Use
  Company Number: 04P-163-0264032-00

PATIENT
  Age: 67 Year
  Sex: Female
  Weight: 68.0396 kg

DRUGS (12)
  1. HUMIRA [Suspect]
     Indication: RHEUMATOID ARTHRITIS
     Dosage: 40 MG, 1 IN 2 WK, SUBCUTANEOUS
     Route: 058
     Dates: start: 20040101, end: 20040420
  2. HUMIRA [Suspect]
     Indication: RHEUMATOID ARTHRITIS
     Dosage: 40 MG, 1 IN 2 WK, SUBCUTANEOUS
     Route: 058
     Dates: start: 20040604
  3. RISEDRONATE SODIUM [Concomitant]
  4. LEVOTHYROXINE SODIUM [Concomitant]
  5. AMLODIPINE BESYLATE [Concomitant]
  6. IRBESARTAN [Concomitant]
  7. METOPROLOL SUCCINATE [Concomitant]
  8. POTASSIUM CHLORIDE [Concomitant]
  9. CALCIUM CARBONATE [Concomitant]
  10. IBUPROFEN [Concomitant]
  11. RABEPRAZOLE SODIUM [Concomitant]
  12. GLYCOPYRRONIUM BROMIDE [Concomitant]

REACTIONS (3)
  - BILIARY NEOPLASM [None]
  - TOOTH INJURY [None]
  - UMBILICAL HERNIA [None]
